FAERS Safety Report 8281403 (Version 5)
Quarter: 2014Q1

REPORT INFORMATION
  Report Type: Report from Study
  Country: PL (occurrence: PL)
  Receive Date: 20111209
  Receipt Date: 20140312
  Transmission Date: 20141002
  Serious: Yes (Hospitalization)
  Sender: FDA-Public Use
  Company Number: PL-CELGENEUS-129-CCAZA-11113448

PATIENT
  Age: 78 Year
  Sex: Male
  Weight: 85 kg

DRUGS (3)
  1. AZACITIDINE INJECTABLE [Suspect]
     Indication: ACUTE MYELOID LEUKAEMIA
     Dosage: 75 MILLIGRAM/SQ. METER
     Route: 058
     Dates: start: 20110511, end: 20110517
  2. AZACITIDINE INJECTABLE [Suspect]
     Dosage: 75 MILLIGRAM/SQ. METER
     Route: 058
     Dates: start: 20111026, end: 20111101
  3. AZACITIDINE INJECTABLE [Suspect]
     Route: 058
     Dates: end: 20111123

REACTIONS (1)
  - Skin ulcer [Not Recovered/Not Resolved]
